FAERS Safety Report 7775744-4 (Version None)
Quarter: 2011Q3

REPORT INFORMATION
  Report Type: 
  Country: None (occurrence: None)
  Receive Date: 20110921
  Receipt Date: 20110616
  Transmission Date: 20111222
  Serious: Yes (Hospitalization)
  Sender: FDA-Public Use
  Company Number: UTC-007652

PATIENT
  Age: 75 Year
  Sex: Female

DRUGS (2)
  1. TYVASO [Suspect]
     Indication: PULMONARY HYPERTENSION
     Dosage: 360 MCG (90 MCG, 4 IN 1 D), INHALATION
     Route: 055
     Dates: start: 20100701
  2. REVATIO [Suspect]

REACTIONS (4)
  - ANAEMIA [None]
  - HYPERHIDROSIS [None]
  - PALPITATIONS [None]
  - GASTROINTESTINAL HAEMORRHAGE [None]
